FAERS Safety Report 16692395 (Version 1)
Quarter: 2019Q3

REPORT INFORMATION
  Report Type: Spontaneous
  Country: US (occurrence: US)
  Receive Date: 20190812
  Receipt Date: 20190812
  Transmission Date: 20191004
  Serious: No
  Sender: FDA-Public Use
  Company Number: US-PFIZER INC-2019341496

PATIENT
  Age: 69 Year
  Sex: Male
  Weight: 70.31 kg

DRUGS (1)
  1. REVATIO [Suspect]
     Active Substance: SILDENAFIL CITRATE
     Indication: CARDIOVASCULAR DISORDER
     Dosage: 20 MG, 1X/DAY

REACTIONS (3)
  - Drug effective for unapproved indication [Unknown]
  - Memory impairment [Unknown]
  - Off label use [Unknown]
